FAERS Safety Report 12333927 (Version 2)
Quarter: 2017Q1

REPORT INFORMATION
  Report Type: Spontaneous
  Country: US (occurrence: US)
  Receive Date: 20160504
  Receipt Date: 20170111
  Transmission Date: 20170428
  Serious: Yes (Hospitalization)
  Sender: FDA-Public Use
  Company Number: US-ROCHE-1685333

PATIENT
  Age: 65 Year
  Sex: Male

DRUGS (2)
  1. ESBRIET [Suspect]
     Active Substance: PIRFENIDONE
     Indication: IDIOPATHIC PULMONARY FIBROSIS
     Route: 048
     Dates: start: 20150112
  2. ESBRIET [Suspect]
     Active Substance: PIRFENIDONE
     Route: 048
     Dates: start: 201311

REACTIONS (13)
  - Emotional disorder [Unknown]
  - Gastrooesophageal reflux disease [Unknown]
  - Throat irritation [Recovered/Resolved]
  - Pneumonia [Unknown]
  - Burning sensation [Unknown]
  - Weight decreased [Recovered/Resolved]
  - Skin discolouration [Not Recovered/Not Resolved]
  - Decreased appetite [Recovered/Resolved]
  - Memory impairment [Not Recovered/Not Resolved]
  - Insomnia [Recovering/Resolving]
  - Asthenia [Recovered/Resolved]
  - Disturbance in attention [Not Recovered/Not Resolved]
  - Pruritus [Not Recovered/Not Resolved]

NARRATIVE: CASE EVENT DATE: 201311
